FAERS Safety Report 15264596 (Version 1)
Quarter: 2018Q3

REPORT INFORMATION
  Report Type: Spontaneous
  Country: US (occurrence: US)
  Receive Date: 20180723
  Receipt Date: 20180723
  Transmission Date: 20181010
  Serious: Yes (Hospitalization)
  Sender: FDA-Public Use
  Company Number: None

PATIENT
  Age: 47 Year
  Sex: Female

DRUGS (2)
  1. NONE LISTED [Concomitant]
  2. HUMIRA [Suspect]
     Active Substance: ADALIMUMAB
     Indication: PRODUCT USED FOR UNKNOWN INDICATION
     Route: 058
     Dates: start: 20180418

REACTIONS (5)
  - Deep vein thrombosis [None]
  - Arthralgia [None]
  - Pulmonary embolism [None]
  - Pain [None]
  - Joint stiffness [None]

NARRATIVE: CASE EVENT DATE: 20180530
